FAERS Safety Report 8462078-8 (Version None)
Quarter: 2012Q2

REPORT INFORMATION
  Report Type: 
  Country: None (occurrence: None)
  Receive Date: 20120625
  Receipt Date: 20120619
  Transmission Date: 20120825
  Serious: Yes (Other)
  Sender: FDA-Public Use
  Company Number: US-BAYER-2012-061852

PATIENT
  Sex: Male

DRUGS (1)
  1. ANTIHEMOPHILIC FACTOR (HUMAN) [Suspect]
     Indication: FACTOR VIII DEFICIENCY

REACTIONS (1)
  - HAEMORRHAGE [None]
